FAERS Safety Report 8330214-X (Version None)
Quarter: 2012Q2

REPORT INFORMATION
  Report Type: 
  Country: None (occurrence: None)
  Receive Date: 20120502
  Receipt Date: 20100219
  Transmission Date: 20120825
  Serious: No
  Sender: FDA-Public Use
  Company Number: US-TEVA-2010000976

PATIENT
  Sex: Male

DRUGS (1)
  1. NUVIGIL [Suspect]
     Indication: CHRONIC FATIGUE SYNDROME
     Dosage: 150 MILLIGRAM;
     Route: 048
     Dates: start: 20100204

REACTIONS (4)
  - INSOMNIA [None]
  - POLLAKIURIA [None]
  - BLADDER PAIN [None]
  - MICTURITION URGENCY [None]
